FAERS Safety Report 11256364 (Version 5)
Quarter: 2016Q3

REPORT INFORMATION
  Report Type: Spontaneous
  Country: US (occurrence: US)
  Receive Date: 20150709
  Receipt Date: 20160704
  Transmission Date: 20161109
  Serious: Yes (Hospitalization)
  Sender: FDA-Public Use
  Company Number: US-JNJFOC-20150506032

PATIENT
  Age: 85 Year
  Sex: Male

DRUGS (27)
  1. IMBRUVICA [Suspect]
     Active Substance: IBRUTINIB
     Indication: LYMPHOMA
     Route: 048
     Dates: start: 20150424, end: 20150524
  2. IMBRUVICA [Suspect]
     Active Substance: IBRUTINIB
     Indication: WALDENSTROM^S MACROGLOBULINAEMIA
     Route: 048
  3. BACITRACIN ZINC. [Concomitant]
     Active Substance: BACITRACIN ZINC
  4. EFFEXOR [Concomitant]
     Active Substance: VENLAFAXINE HYDROCHLORIDE
  5. SULFADIAZINE. [Concomitant]
     Active Substance: SULFADIAZINE
  6. IMBRUVICA [Suspect]
     Active Substance: IBRUTINIB
     Indication: MANTLE CELL LYMPHOMA
     Route: 048
     Dates: start: 20150424, end: 20150524
  7. CELEBREX [Concomitant]
     Active Substance: CELECOXIB
  8. GABAPENTIN. [Concomitant]
     Active Substance: GABAPENTIN
  9. OXYBUTYNIN CHLORIDE. [Concomitant]
     Active Substance: OXYBUTYNIN CHLORIDE
  10. VITAMIN B12 [Concomitant]
     Active Substance: CYANOCOBALAMIN
  11. AMITRIPTYLINE HCL [Concomitant]
     Active Substance: AMITRIPTYLINE
  12. FOLBIC [Concomitant]
     Active Substance: CYANOCOBALAMIN\FOLIC ACID\PYRIDOXINE
  13. SIMETHECONE [Concomitant]
  14. IMBRUVICA [Suspect]
     Active Substance: IBRUTINIB
     Indication: MANTLE CELL LYMPHOMA
     Route: 048
     Dates: start: 20150624
  15. IMBRUVICA [Suspect]
     Active Substance: IBRUTINIB
     Indication: WALDENSTROM^S MACROGLOBULINAEMIA
     Route: 048
     Dates: start: 20150624
  16. ALLOPURINOL. [Concomitant]
     Active Substance: ALLOPURINOL
  17. IMBRUVICA [Suspect]
     Active Substance: IBRUTINIB
     Indication: LYMPHOMA
     Route: 048
  18. IMBRUVICA [Suspect]
     Active Substance: IBRUTINIB
     Indication: LYMPHOMA
     Route: 048
     Dates: start: 20150624
  19. ACYCLOVIR. [Concomitant]
     Active Substance: ACYCLOVIR
  20. DECADRON [Concomitant]
     Active Substance: DEXAMETHASONE
  21. VALTREX [Concomitant]
     Active Substance: VALACYCLOVIR HYDROCHLORIDE
  22. IMBRUVICA [Suspect]
     Active Substance: IBRUTINIB
     Indication: MANTLE CELL LYMPHOMA
     Route: 048
  23. IMBRUVICA [Suspect]
     Active Substance: IBRUTINIB
     Indication: WALDENSTROM^S MACROGLOBULINAEMIA
     Route: 048
     Dates: start: 20150424, end: 20150524
  24. ARICEPT [Concomitant]
     Active Substance: DONEPEZIL HYDROCHLORIDE
  25. PROTONIX [Concomitant]
     Active Substance: PANTOPRAZOLE SODIUM
  26. SPIRIVA [Concomitant]
     Active Substance: TIOTROPIUM BROMIDE MONOHYDRATE
  27. XANAX [Concomitant]
     Active Substance: ALPRAZOLAM

REACTIONS (16)
  - Weight decreased [Recovered/Resolved]
  - Muscular weakness [Not Recovered/Not Resolved]
  - Laboratory test abnormal [Unknown]
  - Weight increased [Not Recovered/Not Resolved]
  - Productive cough [Not Recovered/Not Resolved]
  - Pulmonary oedema [Not Recovered/Not Resolved]
  - Fluid retention [Not Recovered/Not Resolved]
  - Fall [Not Recovered/Not Resolved]
  - Skin fragility [Not Recovered/Not Resolved]
  - Pyrexia [Not Recovered/Not Resolved]
  - Contusion [Not Recovered/Not Resolved]
  - Haemoptysis [Not Recovered/Not Resolved]
  - Rash [Recovered/Resolved]
  - Pleural calcification [Unknown]
  - Decreased appetite [Not Recovered/Not Resolved]
  - Constipation [Not Recovered/Not Resolved]

NARRATIVE: CASE EVENT DATE: 2015
